FAERS Safety Report 4767111-2 (Version None)
Quarter: 2005Q3

REPORT INFORMATION
  Report Type: 
  Country: None (occurrence: None)
  Receive Date: 20050906
  Receipt Date: 20050823
  Transmission Date: 20060218
  Serious: Yes (Other)
  Sender: FDA-Public Use
  Company Number: HQWYE191630AUG05

PATIENT
  Age: 36 Month

DRUGS (1)
  1. REFACTO [Suspect]
     Indication: FACTOR VIII DEFICIENCY
     Dosage: INTRAVENOUS
     Route: 042

REACTIONS (2)
  - ANTI FACTOR VIII ANTIBODY POSITIVE [None]
  - LABORATORY TEST ABNORMAL [None]
